FAERS Safety Report 7639295-X (Version None)
Quarter: 2011Q3

REPORT INFORMATION
  Report Type: 
  Country: None (occurrence: None)
  Receive Date: 20110727
  Receipt Date: 20110720
  Transmission Date: 20111222
  Serious: Yes (Hospitalization)
  Sender: FDA-Public Use
  Company Number: JP-MERCK-1107USA02122

PATIENT
  Age: 24 Year
  Sex: Male

DRUGS (5)
  1. DECADRON [Suspect]
     Route: 048
     Dates: start: 20091201
  2. DECADRON [Suspect]
     Route: 048
     Dates: start: 20091201
  3. DECADRON [Suspect]
     Route: 048
     Dates: start: 20091201
  4. DECADRON [Suspect]
     Indication: ARTERIOVENOUS MALFORMATION
     Route: 048
     Dates: start: 20091201
  5. DECADRON [Suspect]
     Route: 048
     Dates: start: 20091201

REACTIONS (1)
  - ARTHRITIS BACTERIAL [None]
